FAERS Safety Report 5961013-1 (Version None)
Quarter: 2008Q4

REPORT INFORMATION
  Report Type: 
  Country: None (occurrence: None)
  Receive Date: 20081121
  Receipt Date: 20080319
  Transmission Date: 20090506
  Serious: No
  Sender: FDA-Public Use
  Company Number: A0717837A

PATIENT
  Age: 72 Year
  Sex: Female

DRUGS (2)
  1. DIGOXIN [Suspect]
     Route: 065
     Dates: start: 19760101
  2. UNKNOWN [Concomitant]

REACTIONS (1)
  - DRUG INEFFECTIVE [None]
